FAERS Safety Report 7382971-7 (Version None)
Quarter: 2011Q1

REPORT INFORMATION
  Report Type: 
  Country: None (occurrence: None)
  Receive Date: 20110330
  Receipt Date: 20110315
  Transmission Date: 20110831
  Serious: Yes (Other)
  Sender: FDA-Public Use
  Company Number: GB-RANBAXY-2011RR-43133

PATIENT
  Sex: Female

DRUGS (1)
  1. SIMVASTATIN [Suspect]

REACTIONS (1)
  - MUSCULOSKELETAL STIFFNESS [None]
